FAERS Safety Report 4866789-2 (Version None)
Quarter: 2005Q4

REPORT INFORMATION
  Report Type: 
  Country: None (occurrence: None)
  Receive Date: 20051222
  Receipt Date: 20051212
  Transmission Date: 20060501
  Serious: Yes (Life-Threatening, Hospitalization)
  Sender: FDA-Public Use
  Company Number: DE200512001945

PATIENT
  Age: 84 Year
  Sex: Male

DRUGS (8)
  1. ZYPREXA [Suspect]
     Indication: MANIA
     Dosage: 7.5 MG DAILY (1/D)
     Dates: start: 20051207, end: 20051209
  2. TAMSULOSIN HCL [Concomitant]
  3. ISOPTIN /GFR/(VERAPAMIL HYDROCHLORIDE) [Concomitant]
  4. QUILONUM(LITHIUM ACETATE) [Concomitant]
  5. FUROSEMIDE [Concomitant]
  6. CAPTOPRIL [Concomitant]
  7. ACETYLSALICYLIC ACID SRT [Concomitant]
  8. MELNEURIN (MELPERONE HYDROCHLORIDE) [Concomitant]

REACTIONS (4)
  - ATRIAL FIBRILLATION [None]
  - BLOOD PRESSURE DECREASED [None]
  - HEART RATE DECREASED [None]
  - LOSS OF CONSCIOUSNESS [None]
